FAERS Safety Report 8850198 (Version 1)
Quarter: 2012Q4

REPORT INFORMATION
  Report Type: 
  Country: US (occurrence: US)
  Receive Date: 20121019
  Receipt Date: 20121019
  Transmission Date: 20130627
  Serious: No
  Sender: FDA-Public Use
  Company Number: US-ASTRAZENECA-2012SE13984

PATIENT
  Age: 72 Year
  Sex: Male
  Weight: 85.3 kg

DRUGS (6)
  1. ZESTORETIC [Suspect]
     Indication: HYPERTENSION
     Dosage: 10+12.5 MG DAILY
     Route: 048
  2. ZOMIG [Suspect]
     Indication: MIGRAINE
     Route: 048
  3. TOPAMAX [Concomitant]
     Indication: MIGRAINE
  4. MELOXICAM [Concomitant]
     Indication: ARTHRITIS
  5. PRAVASTATIN SOD [Concomitant]
     Indication: BLOOD CHOLESTEROL ABNORMAL
  6. SYNTHROID [Concomitant]
     Indication: HYPOTHYROIDISM

REACTIONS (3)
  - Hypothyroidism [Unknown]
  - Chest pain [Unknown]
  - Off label use [Unknown]
